FAERS Safety Report 13905165 (Version 3)
Quarter: 2017Q3

REPORT INFORMATION
  Report Type: Spontaneous
  Country: EG (occurrence: EG)
  Receive Date: 20170825
  Receipt Date: 20170926
  Transmission Date: 20171127
  Serious: Yes (Disabling, Other)
  Sender: FDA-Public Use
  Company Number: EG-ROCHE-1983108

PATIENT
  Age: 60 Year
  Sex: Female

DRUGS (2)
  1. LUCENTIS [Suspect]
     Active Substance: RANIBIZUMAB
     Indication: DIABETIC RETINAL OEDEMA
     Route: 031
     Dates: start: 20170705
  2. LUCENTIS [Suspect]
     Active Substance: RANIBIZUMAB
     Route: 031
     Dates: start: 20170731

REACTIONS (4)
  - Vitritis [Unknown]
  - Vision blurred [Unknown]
  - Non-infectious endophthalmitis [Unknown]
  - Eye pain [Unknown]

NARRATIVE: CASE EVENT DATE: 20170802
